FAERS Safety Report 9417164 (Version 1)
Quarter: 2013Q3

REPORT INFORMATION
  Report Type: Spontaneous
  Country: GB (occurrence: GB)
  Receive Date: 20130722
  Receipt Date: 20130722
  Transmission Date: 20140515
  Serious: Yes (Hospitalization)
  Sender: FDA-Public Use
  Company Number: AG-2013-014662

PATIENT
  Age: 77 Year
  Sex: Male
  Weight: 77 kg

DRUGS (13)
  1. CHLORAMBUCIL (CHLORAMBUCIL) (UNKNOWN) [Suspect]
     Indication: CHRONIC LYMPHOCYTIC LEUKAEMIA
  2. OFATUMUMAB (OFATUMUMAB) (UNKNOWN) [Suspect]
     Indication: CHRONIC LYMPHOCYTIC LEUKAEMIA
  3. PARACETAMOL (PARACETAMOL) [Concomitant]
  4. CHLORPHENIRAMINE (CHLORPHENAMINE) [Concomitant]
  5. PREDNISOLONE (PREDNISOLONE) [Concomitant]
  6. ALLOPURINOL [Concomitant]
  7. METOCLOPRAMIDE (METOCLOPRAMIDE) [Concomitant]
  8. ACICLOVIR (ACICLOVIR) [Concomitant]
  9. GCSF (COLONY STIMULATING FACTORS) [Concomitant]
  10. SIMVASTATIN (SIMVASTATIN) [Concomitant]
  11. BISOPROLOL (BISOPROLOL) [Concomitant]
  12. LOSARTAN (LOSARTAN) [Concomitant]
  13. ASPIRIN (ACETYLSALICYLIC ACID) [Concomitant]

REACTIONS (2)
  - Oedema peripheral [None]
  - Urinary tract infection [None]
